FAERS Safety Report 7347712-8 (Version None)
Quarter: 2011Q1

REPORT INFORMATION
  Report Type: 
  Country: None (occurrence: None)
  Receive Date: 20110311
  Receipt Date: 20110307
  Transmission Date: 20110831
  Serious: Yes (Hospitalization)
  Sender: FDA-Public Use
  Company Number: B0704249A

PATIENT
  Sex: Male

DRUGS (1)
  1. LAMICTAL [Suspect]
     Indication: EPILEPSY
     Route: 048
     Dates: start: 20101201, end: 20110117

REACTIONS (9)
  - MUCOUS MEMBRANE DISORDER [None]
  - GENITAL LESION [None]
  - HAEMORRHAGE [None]
  - STEVENS-JOHNSON SYNDROME [None]
  - PAPULE [None]
  - SKIN LESION [None]
  - MUCOSAL EROSION [None]
  - PRURITUS [None]
  - BLISTER [None]
